FAERS Safety Report 12601994 (Version 1)
Quarter: 2016Q3

REPORT INFORMATION
  Report Type: Spontaneous
  Country: MD (occurrence: MD)
  Receive Date: 20160728
  Receipt Date: 20160728
  Transmission Date: 20161109
  Serious: Yes (Life-Threatening, Hospitalization)
  Sender: FDA-Public Use
  Company Number: MD-GE HEALTHCARE MEDICAL DIAGNOSTICS-OMPQ-PR-1607S-1283

PATIENT
  Age: 35 Year
  Sex: Female
  Weight: 75 kg

DRUGS (4)
  1. OMNIPAQUE [Suspect]
     Active Substance: IOHEXOL
     Indication: DIAGNOSTIC PROCEDURE
  2. SODIUM CHLORIDE. [Suspect]
     Active Substance: SODIUM CHLORIDE
     Indication: ADJUVANT THERAPY
     Route: 042
     Dates: start: 20160602, end: 20160602
  3. OMNIPAQUE [Suspect]
     Active Substance: IOHEXOL
     Indication: SARCOMA UTERUS
     Route: 042
     Dates: start: 20160602, end: 20160602
  4. DEXAMETHASONE. [Suspect]
     Active Substance: DEXAMETHASONE
     Indication: IMMUNE TOLERANCE INDUCTION
     Route: 042
     Dates: start: 20160602, end: 20160602

REACTIONS (7)
  - Muscle rigidity [Recovered/Resolved]
  - Hyperhidrosis [Recovered/Resolved]
  - Mydriasis [Recovered/Resolved]
  - Loss of consciousness [Recovered/Resolved]
  - Pallor [Recovered/Resolved]
  - Hypotension [Recovered/Resolved]
  - Tremor [Recovered/Resolved]

NARRATIVE: CASE EVENT DATE: 20160602
